FAERS Safety Report 15991075 (Version 4)
Quarter: 2021Q2

REPORT INFORMATION
  Report Type: Report from Study
  Country: JP (occurrence: JP)
  Receive Date: 20190221
  Receipt Date: 20210603
  Transmission Date: 20210716
  Serious: Yes (Death, Other)
  Sender: FDA-Public Use
  Company Number: JP-ASTELLAS-2019JP001434

PATIENT
  Age: 54 Year
  Sex: Male

DRUGS (5)
  1. ASP2215 [Suspect]
     Active Substance: GILTERITINIB
     Dosage: 120 MG/DAY, UNKNOWN FREQ.
     Route: 048
     Dates: start: 20190204, end: 20190206
  2. VFEND [Concomitant]
     Active Substance: VORICONAZOLE
     Indication: PRODUCT USED FOR UNKNOWN INDICATION
     Dosage: UNK UNK, UNKNOWN FREQ.
     Route: 041
     Dates: start: 20190101, end: 20190201
  3. ASP2215 [Suspect]
     Active Substance: GILTERITINIB
     Indication: ACUTE MYELOID LEUKAEMIA RECURRENT
     Dosage: 120 MG/DAY, UNKNOWN FREQ.
     Route: 048
     Dates: start: 20190110, end: 20190130
  4. FUNGUARD [Concomitant]
     Active Substance: MICAFUNGIN SODIUM
     Indication: SYSTEMIC MYCOSIS
     Dosage: UNK UNK, UNKNOWN FREQ.
     Route: 041
     Dates: start: 20190128, end: 20190215
  5. ASP2215 [Suspect]
     Active Substance: GILTERITINIB
     Dosage: 120 MG/DAY, UNKNOWN FREQ.
     Route: 048
     Dates: start: 20190207, end: 20190215

REACTIONS (2)
  - Atypical pneumonia [Fatal]
  - Electrocardiogram QT prolonged [Recovered/Resolved]

NARRATIVE: CASE EVENT DATE: 20190130
